FAERS Safety Report 25529347 (Version 1)
Quarter: 2025Q3

REPORT INFORMATION
  Report Type: Spontaneous
  Country: US (occurrence: None)
  Receive Date: 20250707
  Receipt Date: 20250707
  Transmission Date: 20251021
  Serious: No
  Sender: FDA-CTU
  Company Number: None

PATIENT
  Age: 39 Year
  Sex: Female
  Weight: 58.05 kg

DRUGS (4)
  1. CETIRIZINE HYDROCHLORIDE [Suspect]
     Active Substance: CETIRIZINE HYDROCHLORIDE
     Indication: Multiple allergies
     Route: 048
     Dates: start: 20200501, end: 20250525
  2. Miromed Estarylla [Concomitant]
  3. Super Human Super Beets supplement [Concomitant]
  4. Member^s Mark Adult multivitamin [Concomitant]

REACTIONS (5)
  - Therapy cessation [None]
  - Pruritus [None]
  - Irritability [None]
  - Scratch [None]
  - Insomnia [None]

NARRATIVE: CASE EVENT DATE: 20250518
